FAERS Safety Report 9072407 (Version 1)
Quarter: 2013Q1

REPORT INFORMATION
  Report Type: Spontaneous
  Country: US (occurrence: US)
  Receive Date: 20130129
  Receipt Date: 20130129
  Transmission Date: 20140127
  Serious: Yes (Hospitalization)
  Sender: FDA-Public Use
  Company Number: US-BAYER-2013-011522

PATIENT
  Age: 26 Year
  Sex: Female

DRUGS (5)
  1. YAZ [Suspect]
  2. APRI [Concomitant]
  3. ATIVAN [Concomitant]
     Indication: ANXIETY
  4. MORPHINE SULFATE [Concomitant]
     Indication: PAIN
  5. FLUOXETINE [Concomitant]
     Indication: MAJOR DEPRESSION
     Dosage: 20 MG, QD

REACTIONS (1)
  - Pulmonary embolism [Recovered/Resolved]
